FAERS Safety Report 19468404 (Version 1)
Quarter: 2021Q2

REPORT INFORMATION
  Report Type: Report from Study
  Country: US (occurrence: US)
  Receive Date: 20210628
  Receipt Date: 20210628
  Transmission Date: 20210717
  Serious: Yes (Death, Other)
  Sender: FDA-Public Use
  Company Number: US-B.I. PHARMACEUTICALS,INC./RIDGEFIELD-2021-BI-078986

PATIENT
  Age: 74 Year
  Sex: Female

DRUGS (1)
  1. OFEV [Suspect]
     Active Substance: NINTEDANIB
     Indication: IDIOPATHIC PULMONARY FIBROSIS
     Dosage: 150 MG BID
     Route: 048
     Dates: start: 20210118, end: 202104

REACTIONS (10)
  - Nausea [Not Recovered/Not Resolved]
  - Sepsis [Fatal]
  - Abdominal discomfort [Recovering/Resolving]
  - Diarrhoea [Unknown]
  - Food aversion [Unknown]
  - Atrial fibrillation [Fatal]
  - Pneumonia [Fatal]
  - Drug ineffective [Not Recovered/Not Resolved]
  - Malaise [Unknown]
  - Asthenia [Recovering/Resolving]

NARRATIVE: CASE EVENT DATE: 20210209
